FAERS Safety Report 6263491-X (Version None)
Quarter: 2009Q3

REPORT INFORMATION
  Report Type: 
  Country: None (occurrence: None)
  Receive Date: 20090710
  Receipt Date: 20090403
  Transmission Date: 20100115
  Serious: No
  Sender: FDA-Public Use
  Company Number: A0771335A

PATIENT
  Age: 43 Year
  Sex: Female
  Weight: 71.4 kg

DRUGS (2)
  1. TYKERB [Suspect]
     Indication: BREAST CANCER
     Dosage: 250MG FIVE TIMES PER DAY
     Route: 048
     Dates: start: 20090228
  2. XELODA [Concomitant]
     Indication: BREAST CANCER
     Dosage: 1000MGM2 TWICE PER DAY
     Route: 048
     Dates: start: 20090224

REACTIONS (2)
  - DYSGEUSIA [None]
  - NAUSEA [None]
